FAERS Safety Report 8545097 (Version 3)
Quarter: 2013Q2

REPORT INFORMATION
  Report Type: Spontaneous
  Country: US (occurrence: None)
  Receive Date: 20120315
  Receipt Date: 20120703
  Transmission Date: 20140414
  Serious: No
  Sender: FDA-Public Use
  Company Number: PHHY2011US13178

PATIENT
  Age: 52 Year
  Sex: Female
  Weight: 96.6 kg

DRUGS (16)
  1. GILENYA [Suspect]
     Indication: MULTIPLE SCLEROSIS
     Route: 048
     Dates: start: 20110131
  2. ADVIL (MEFENAMIC ACID) [Concomitant]
  3. DARVOCET-N (DEXTROPROPOXYPHENE NAPSILATE, PARACETAMOL) [Concomitant]
  4. KLONOPIN (CLONAZEPAM) [Concomitant]
  5. FLEXERIL (CYCLOBENZAPRINE HYDROCHLORIDE) [Concomitant]
  6. LASIX (FUROSEMIDE) [Concomitant]
  7. DEPAKOTE (VALPROATE SEMISODIUM) [Concomitant]
  8. GLUCOPHAGE (METFORMIN) [Concomitant]
  9. VIMPAT (LACOSAMIDE) [Concomitant]
  10. LUNESTA (ESZOPICLONE) [Concomitant]
  11. TYLENOL (PARACETAMOL) [Concomitant]
  12. LORTAB (HYDROCODONE BITARTRATE, PARACETAMOL) [Concomitant]
  13. LISINOPRIL (LISINOPRIL) [Concomitant]
  14. PHENERGAN (PROMETHAZINE HYDROCHLORIDE) [Concomitant]
  15. VICTOZA (LIRAGLUTIDE) [Concomitant]
  16. ATIVAN (LORAZEPAM) [Concomitant]

REACTIONS (6)
  - Malaise [None]
  - Chest discomfort [None]
  - Oedema peripheral [None]
  - Muscle spasms [None]
  - Abdominal discomfort [None]
  - Diarrhoea [None]
